FAERS Safety Report 9738463 (Version 5)
Quarter: 2014Q4

REPORT INFORMATION
  Report Type: Report from Study
  Country: US (occurrence: US)
  Receive Date: 20131208
  Receipt Date: 20141219
  Transmission Date: 20150529
  Serious: Yes (Other)
  Sender: FDA-Public Use
  Company Number: US-VERTEX PHARMACEUTICALS INC-2013-011577

PATIENT
  Age: 17 Year
  Sex: Male
  Weight: 63 kg

DRUGS (12)
  1. ALBUTEROL. [Concomitant]
     Active Substance: ALBUTEROL
     Dosage: UNK, BID
     Route: 055
  2. TOBI [Concomitant]
     Active Substance: TOBRAMYCIN
     Indication: BACTERIAL DISEASE CARRIER
     Dosage: 300 MG, BID, 28 DAYS ON/OFF ALTERNATING WITH CAYSTON
     Route: 055
  3. HYPERTONIC SALINE SOLUTION [Concomitant]
     Active Substance: SODIUM CHLORIDE
     Dosage: UNK, BID
     Route: 055
  4. VITAMIN A [Concomitant]
     Active Substance: VITAMIN A
     Dosage: 10000 IU, QD
     Route: 048
  5. VX-770 FDC [Suspect]
     Active Substance: IVACAFTOR
     Indication: CYSTIC FIBROSIS
     Dosage: 250 MG, Q12HR
     Route: 048
     Dates: start: 20130905, end: 20140224
  6. PULMOZYME [Concomitant]
     Active Substance: DORNASE ALFA
     Dosage: 2.5 ML, QD
     Route: 055
  7. AQUADEKS [Concomitant]
     Dosage: 2 DF, QD
     Route: 048
  8. VX-809 FDC [Suspect]
     Active Substance: IVACAFTOR
     Indication: CYSTIC FIBROSIS
     Dosage: 400 MG, Q12HR
     Route: 048
     Dates: start: 20130905, end: 20140224
  9. CAYSTON [Concomitant]
     Active Substance: AZTREONAM
     Indication: BACTERIAL DISEASE CARRIER
     Dosage: 75 MG, TID, 28 DAYS ON/OFF ALTERNATING WITH TOBI
     Route: 055
  10. PHYTONADIONE. [Concomitant]
     Active Substance: PHYTONADIONE
     Dosage: 20 MG, QD
     Route: 048
  11. ACTIGALL [Concomitant]
     Active Substance: URSODIOL
     Dosage: 900 MG, QD
     Route: 048
  12. CREON [Concomitant]
     Active Substance: PANCRELIPASE AMYLASE\PANCRELIPASE LIPASE\PANCRELIPASE PROTEASE
     Dosage: 4 CAPSULES W/MEALS, 3 CAPSULES WITH SNACKS
     Route: 048

REACTIONS (1)
  - Haemoptysis [Recovered/Resolved]

NARRATIVE: CASE EVENT DATE: 20131031
